FAERS Safety Report 6493364-9 (Version None)
Quarter: 2009Q4

REPORT INFORMATION
  Report Type: 
  Country: None (occurrence: None)
  Receive Date: 20091214
  Receipt Date: 20091203
  Transmission Date: 20100525
  Serious: Yes (Hospitalization)
  Sender: FDA-Public Use
  Company Number: FR-JNJFOC-20091200958

PATIENT
  Age: 34 Year
  Sex: Female
  Weight: 95 kg

DRUGS (3)
  1. REMICADE [Suspect]
     Dosage: RESTARTED AFTER DELIVERY
     Route: 042
  2. REMICADE [Suspect]
     Indication: ENTEROCOLITIS HAEMORRHAGIC
     Dosage: 25 INFUSIONS BY 27-MAY-2009
     Route: 042
  3. REMICADE [Suspect]
     Indication: COLITIS ULCERATIVE
     Route: 042

REACTIONS (2)
  - DRUG INEFFECTIVE [None]
  - HOSPITALISATION [None]
